FAERS Safety Report 8595813-9 (Version None)
Quarter: 2012Q3

REPORT INFORMATION
  Report Type: 
  Country: None (occurrence: None)
  Receive Date: 20120815
  Receipt Date: 20120809
  Transmission Date: 20120928
  Serious: No
  Sender: FDA-Public Use
  Company Number: US-B.I. PHARMACEUTICALS,INC./RIDGEFIELD-2012-BP-17699BP

PATIENT
  Sex: Female
  Weight: 82 kg

DRUGS (5)
  1. XOPENEX [Concomitant]
     Indication: CHRONIC OBSTRUCTIVE PULMONARY DISEASE
     Dosage: 135 MCG
     Route: 055
  2. SPIRIVA [Suspect]
     Indication: CHRONIC OBSTRUCTIVE PULMONARY DISEASE
     Dosage: 18 MCG
     Route: 055
     Dates: start: 20120101
  3. BUDESONIDE [Concomitant]
     Indication: DYSPNOEA
     Dosage: 1 MG
     Route: 055
  4. XANAX [Concomitant]
     Indication: ANXIETY
  5. ALBUTEROL [Concomitant]
     Indication: DYSPNOEA
     Route: 055

REACTIONS (2)
  - THERAPEUTIC RESPONSE DECREASED [None]
  - ANXIETY [None]
